FAERS Safety Report 7054739-2 (Version None)
Quarter: 2010Q4

REPORT INFORMATION
  Report Type: 
  Country: None (occurrence: None)
  Receive Date: 20101018
  Receipt Date: 20101013
  Transmission Date: 20110411
  Serious: Yes (Death, Hospitalization)
  Sender: FDA-Public Use
  Company Number: 2010US003068

PATIENT
  Age: 54 Year
  Sex: Female
  Weight: 50 kg

DRUGS (15)
  1. PROGRAF [Suspect]
     Indication: RENAL AND LIVER TRANSPLANT
     Dosage: 5 MG, BID, ORAL
     Route: 048
     Dates: start: 20100629, end: 20100812
  2. LASIX [Concomitant]
  3. MEROPENEM [Concomitant]
  4. VALCYTE [Concomitant]
  5. URSODIOL [Concomitant]
  6. CIPROFLOX (CIPROFLOXACIN LACTATE) [Concomitant]
  7. ESOMEPRAZOLE (ESOMEPRAZOLE) [Concomitant]
  8. MULTIVITAMIN (VITAMIN NOS) [Concomitant]
  9. OXYCODONE HCL [Concomitant]
  10. ACETAMINOPHEN [Concomitant]
  11. MYCAMINE [Concomitant]
  12. NEXIUM [Concomitant]
  13. NEUPOGEN [Concomitant]
  14. HUMALOG [Concomitant]
  15. SODIUM BICARBONATE IN PLASTIC CONTAINER [Concomitant]

REACTIONS (2)
  - HEPATIC FAILURE [None]
  - RESPIRATORY FAILURE [None]
